FAERS Safety Report 7946807-5 (Version None)
Quarter: 2011Q4

REPORT INFORMATION
  Report Type: 
  Country: None (occurrence: None)
  Receive Date: 20111129
  Receipt Date: 20111122
  Transmission Date: 20120403
  Serious: Yes (Hospitalization)
  Sender: FDA-Public Use
  Company Number: ES-ROCHE-1015667

PATIENT
  Sex: Female

DRUGS (6)
  1. CLOPIDOGREL BISULFATE [Concomitant]
     Indication: ISCHAEMIC STROKE
     Route: 048
  2. ACTEMRA [Suspect]
     Indication: RHEUMATOID ARTHRITIS
     Route: 042
     Dates: start: 20101022
  3. ZOLPIDEM TARTRATE [Concomitant]
     Indication: INSOMNIA
     Route: 048
  4. DOMPERIDONE [Concomitant]
     Indication: DYSPEPSIA
     Route: 048
  5. LORMETAZEPAM [Concomitant]
     Indication: INSOMNIA
     Route: 048
  6. METHOTREXATE [Suspect]
     Indication: RHEUMATOID ARTHRITIS
     Route: 048
     Dates: start: 20110104

REACTIONS (1)
  - PANCYTOPENIA [None]
